FAERS Safety Report 9058523 (Version 2)
Quarter: 2013Q1

REPORT INFORMATION
  Report Type: Spontaneous
  Country: US (occurrence: US)
  Receive Date: 20130211
  Receipt Date: 20130219
  Transmission Date: 20140127
  Serious: Yes (Hospitalization)
  Sender: FDA-Public Use
  Company Number: US-JNJFOC-20130204756

PATIENT
  Age: 61 None
  Sex: Female
  Weight: 73.94 kg

DRUGS (4)
  1. TYLENOL [Suspect]
     Indication: HEADACHE
     Route: 048
  2. CHOLESTEROL MEDICATION [Concomitant]
  3. BLOOD PRESSURE MEDICATION NOS [Concomitant]
  4. UNKNOWN MEDICATION [Concomitant]
     Indication: HYPERSENSITIVITY

REACTIONS (9)
  - Atrial fibrillation [Not Recovered/Not Resolved]
  - Incorrect dose administered [Unknown]
  - Abdominal discomfort [Recovered/Resolved]
  - Malaise [Recovered/Resolved]
  - Feeling abnormal [None]
  - Dizziness [None]
  - Headache [None]
  - Chest discomfort [None]
  - Dyspnoea [None]
